FAERS Safety Report 5382283-7 (Version None)
Quarter: 2007Q3

REPORT INFORMATION
  Report Type: 
  Country: None (occurrence: None)
  Receive Date: 20070709
  Receipt Date: 20070627
  Transmission Date: 20080115
  Serious: Yes (Other)
  Sender: FDA-Public Use
  Company Number: US-PFIZER INC-2007040094

PATIENT
  Sex: Male
  Weight: 97.5 kg

DRUGS (6)
  1. LIPITOR [Suspect]
     Route: 048
  2. PAXIL [Concomitant]
  3. VALSARTAN [Concomitant]
  4. ASPIRIN [Concomitant]
  5. TAMSULOSIN HCL [Concomitant]
  6. VITAMIN B-12 [Concomitant]

REACTIONS (2)
  - DEMENTIA [None]
  - PROGRESSIVE SUPRANUCLEAR PALSY [None]
